FAERS Safety Report 7292013-X (Version None)
Quarter: 2011Q1

REPORT INFORMATION
  Report Type: 
  Country: None (occurrence: None)
  Receive Date: 20110215
  Receipt Date: 20110203
  Transmission Date: 20110831
  Serious: Yes (Hospitalization)
  Sender: FDA-Public Use
  Company Number: US-BIOGENIDEC-2010BI044924

PATIENT
  Age: 31 Year
  Sex: Female

DRUGS (3)
  1. TYSABRI [Suspect]
     Indication: MULTIPLE SCLEROSIS
     Route: 042
     Dates: start: 20061227
  2. BACLOFEN [Concomitant]
     Indication: MUSCLE SPASTICITY
     Route: 037
  3. DEPO-PROVERA [Concomitant]

REACTIONS (5)
  - KIDNEY INFECTION [None]
  - ANAEMIA [None]
  - MULTIPLE SCLEROSIS RELAPSE [None]
  - BONE MARROW FAILURE [None]
  - NEPHROLITHIASIS [None]
